FAERS Safety Report 12317154 (Version 1)
Quarter: 2016Q2

REPORT INFORMATION
  Report Type: Spontaneous
  Country: GB (occurrence: GB)
  Receive Date: 20160429
  Receipt Date: 20160429
  Transmission Date: 20160815
  Serious: Yes (Death, Hospitalization)
  Sender: FDA-Public Use
  Company Number: GB-AXELLIA-000917

PATIENT
  Age: 72 Year
  Sex: Male
  Weight: 140 kg

DRUGS (15)
  1. METFORMIN [Concomitant]
     Active Substance: METFORMIN HYDROCHLORIDE
  2. AMITRIPTYLINE [Concomitant]
     Active Substance: AMITRIPTYLINE
  3. VANCOMYCIN [Suspect]
     Active Substance: VANCOMYCIN
     Indication: ENDOCARDITIS
     Dates: start: 20160303, end: 20160309
  4. CLOPIDOGREL [Concomitant]
     Active Substance: CLOPIDOGREL BISULFATE
  5. SIMVASTATIN. [Concomitant]
     Active Substance: SIMVASTATIN
  6. GLICLAZIDE [Concomitant]
     Active Substance: GLICLAZIDE
  7. CO-AMOXICLAV [Concomitant]
     Active Substance: AMOXICILLIN\CLAVULANIC ACID
  8. DEXCEL-PHARMA ISOSORBIDE MONONITRATE [Concomitant]
  9. CLONIDINE. [Concomitant]
     Active Substance: CLONIDINE
  10. GENTAMICIN. [Suspect]
     Active Substance: GENTAMICIN
     Indication: ENDOCARDITIS
     Dates: start: 20160303, end: 20160310
  11. TEICOPLANIN [Suspect]
     Active Substance: TEICOPLANIN
     Indication: ENDOCARDITIS
     Route: 042
     Dates: start: 20160309, end: 20160311
  12. ACARBOSE. [Concomitant]
     Active Substance: ACARBOSE
  13. DILTIAZEM [Concomitant]
     Active Substance: DILTIAZEM
  14. OMEPRAZOLE. [Concomitant]
     Active Substance: OMEPRAZOLE
  15. RAMIPRIL. [Concomitant]
     Active Substance: RAMIPRIL

REACTIONS (18)
  - Nausea [Unknown]
  - Dyspnoea [Unknown]
  - Lethargy [Unknown]
  - Seizure [Unknown]
  - Mast cell degranulation present [Unknown]
  - Vomiting [Unknown]
  - Diabetes mellitus inadequate control [Unknown]
  - Hypersensitivity [Fatal]
  - Tachycardia [Unknown]
  - Renal impairment [Unknown]
  - Hypertension [Unknown]
  - Chills [Unknown]
  - Brain injury [Unknown]
  - White blood cell count increased [Unknown]
  - Cardiac arrest [Unknown]
  - Drug level increased [Unknown]
  - C-reactive protein increased [Unknown]
  - Respiratory arrest [Unknown]

NARRATIVE: CASE EVENT DATE: 20160312
